FAERS Safety Report 7969971-0 (Version None)
Quarter: 2011Q4

REPORT INFORMATION
  Report Type: 
  Country: None (occurrence: None)
  Receive Date: 20111212
  Receipt Date: 20111130
  Transmission Date: 20120403
  Serious: Yes (Other)
  Sender: FDA-Public Use
  Company Number: JP-BAYER-2011-052010

PATIENT
  Age: 78 Year
  Sex: Male
  Weight: 47 kg

DRUGS (6)
  1. FLUOROURACIL [Suspect]
     Indication: HEPATIC NEOPLASM MALIGNANT RECURRENT
     Dosage: DAILY DOSE 250 MG
     Route: 013
     Dates: start: 20100201
  2. NEXAVAR [Suspect]
     Dosage: 200 MG, QD
     Route: 048
     Dates: start: 20100313, end: 20100315
  3. CISPLATIN [Suspect]
     Indication: HEPATIC NEOPLASM MALIGNANT RECURRENT
     Dosage: DAILY DOSE 10 MG
     Route: 013
     Dates: start: 20100201
  4. NEXAVAR [Suspect]
     Dosage: 200 MG, QD
     Route: 048
     Dates: start: 20100323
  5. INSULIN [Concomitant]
     Indication: DIABETES MELLITUS
     Dosage: UNK
     Dates: start: 19900101
  6. NEXAVAR [Suspect]
     Indication: HEPATIC NEOPLASM MALIGNANT RECURRENT
     Dosage: 400 MG, QD
     Route: 048
     Dates: start: 20100309, end: 20100312

REACTIONS (1)
  - PANCYTOPENIA [None]
